FAERS Safety Report 7290493-7 (Version None)
Quarter: 2011Q1

REPORT INFORMATION
  Report Type: 
  Country: None (occurrence: None)
  Receive Date: 20110214
  Receipt Date: 20110208
  Transmission Date: 20110831
  Serious: No
  Sender: FDA-Public Use
  Company Number: US-PFIZER INC-2011029020

PATIENT
  Age: 49 Year
  Sex: Female
  Weight: 90.703 kg

DRUGS (1)
  1. ADVIL COLD AND SINUS [Suspect]
     Indication: NASOPHARYNGITIS
     Dosage: 2 CAPLETS, 3X/DAY
     Route: 048
     Dates: start: 20110201, end: 20110207

REACTIONS (1)
  - DRUG INEFFECTIVE [None]
